FAERS Safety Report 5001674-7 (Version None)
Quarter: 2006Q2

REPORT INFORMATION
  Report Type: 
  Country: None (occurrence: None)
  Receive Date: 20060511
  Receipt Date: 20060511
  Transmission Date: 20061013
  Serious: Yes (Other)
  Sender: FDA-Public Use
  Company Number: None

PATIENT
  Age: 56 Year
  Sex: Female
  Weight: 141.9759 kg

DRUGS (2)
  1. GLUCOTROL [Suspect]
  2. METFORMIN [Suspect]

REACTIONS (4)
  - MYALGIA [None]
  - NAUSEA [None]
  - RASH [None]
  - VOMITING [None]
